FAERS Safety Report 8192290-7 (Version None)
Quarter: 2012Q1

REPORT INFORMATION
  Report Type: 
  Country: None (occurrence: None)
  Receive Date: 20120307
  Receipt Date: 20120227
  Transmission Date: 20120608
  Serious: Yes (Other)
  Sender: FDA-Public Use
  Company Number: US-ASTRAZENECA-2012SE10092

PATIENT
  Age: 86 Year
  Sex: Male
  Weight: 70.3 kg

DRUGS (6)
  1. VITAMIN D [Concomitant]
  2. ASCORBIC ACID [Concomitant]
  3. CASODEX [Suspect]
     Indication: PROSTATE CANCER METASTATIC
     Route: 048
     Dates: start: 20120207
  4. ASPIRIN [Concomitant]
     Indication: HEART RATE IRREGULAR
  5. CALCIUM SUPPLEMENT [Concomitant]
  6. ATIVAN [Concomitant]
     Dosage: PRN

REACTIONS (3)
  - BACK PAIN [None]
  - ARTERIAL OCCLUSIVE DISEASE [None]
  - DIZZINESS [None]
